FAERS Safety Report 7738557-5 (Version None)
Quarter: 2011Q3

REPORT INFORMATION
  Report Type: 
  Country: None (occurrence: None)
  Receive Date: 20110908
  Receipt Date: 20110830
  Transmission Date: 20111222
  Serious: Yes (Hospitalization, Other)
  Sender: FDA-Public Use
  Company Number: US-ASTRAZENECA-2011SE51183

PATIENT
  Age: 74 Year
  Sex: Female

DRUGS (2)
  1. NEXIUM [Suspect]
     Route: 048
  2. NAMENDA [Concomitant]

REACTIONS (4)
  - CEREBROVASCULAR ACCIDENT [None]
  - DRUG DOSE OMISSION [None]
  - DEMENTIA [None]
  - WRONG DRUG ADMINISTERED [None]
